FAERS Safety Report 10644016 (Version 1)
Quarter: 2014Q4

REPORT INFORMATION
  Report Type: Spontaneous
  Country: CN (occurrence: CN)
  Receive Date: 20141210
  Receipt Date: 20141210
  Transmission Date: 20150529
  Serious: Yes (Death, Life-Threatening)
  Sender: FDA-Public Use
  Company Number: CN-BAYER-2014-177933

PATIENT

DRUGS (3)
  1. AVELOX [Suspect]
     Active Substance: MOXIFLOXACIN HYDROCHLORIDE
     Indication: NASOPHARYNGITIS
  2. CEPHALOSPORIN C [Concomitant]
     Active Substance: CEPHALOSPORIN C
     Dosage: UNK
  3. AVELOX [Suspect]
     Active Substance: MOXIFLOXACIN HYDROCHLORIDE
     Indication: LARYNGEAL ULCERATION
     Dosage: UNK
     Route: 048

REACTIONS (2)
  - Asphyxia [Fatal]
  - Laryngeal oedema [None]
